FAERS Safety Report 14008215 (Version 2)
Quarter: 2017Q4

REPORT INFORMATION
  Report Type: Report from Study
  Country: AU (occurrence: AU)
  Receive Date: 20170925
  Receipt Date: 20171019
  Transmission Date: 20180321
  Serious: Yes (Other)
  Sender: FDA-Public Use
  Company Number: PHHY2016AU094505

PATIENT
  Age: 17 Year
  Sex: Male

DRUGS (25)
  1. CLOZARIL [Suspect]
     Active Substance: CLOZAPINE
     Indication: SCHIZOPHRENIA
     Dosage: 375 MG, AT NIGHT
     Route: 048
     Dates: start: 20160617
  2. CLOZARIL [Suspect]
     Active Substance: CLOZAPINE
     Dosage: 50 MG, QD (25 MG MORNING AND 25 MG EVENING)
     Route: 048
     Dates: start: 20160621
  3. CLOZARIL [Suspect]
     Active Substance: CLOZAPINE
     Dosage: 175 MG, QD (50 MG MORNING AND 125 MG EVENING)
     Route: 048
     Dates: start: 20160707, end: 20170908
  4. CLOZARIL [Suspect]
     Active Substance: CLOZAPINE
     Dosage: 375 MG, AT NIGHT
     Route: 048
     Dates: end: 20170913
  5. FLUOXETINE [Suspect]
     Active Substance: FLUOXETINE HYDROCHLORIDE
     Indication: MAJOR DEPRESSION
     Dosage: 40 MG, UNK
     Route: 048
     Dates: start: 201603
  6. CLOZARIL [Suspect]
     Active Substance: CLOZAPINE
     Dosage: 25 MG, MORNING
     Route: 048
     Dates: start: 20160619
  7. CLOZARIL [Suspect]
     Active Substance: CLOZAPINE
     Dosage: 100 MG, QD (25 MG MORNING AND 75 MG EVENING)
     Route: 048
     Dates: start: 20160628
  8. CLOZARIL [Suspect]
     Active Substance: CLOZAPINE
     Dosage: 100 MG, QD (25 MG MORNING AND 75 MG EVENING)
     Route: 048
     Dates: start: 20160627
  9. CLOZARIL [Suspect]
     Active Substance: CLOZAPINE
     Dosage: 175 MG, QD (50 MG MORNING AND 125 MG EVENING)
     Route: 048
     Dates: start: 20160706
  10. FLUOXETINE [Suspect]
     Active Substance: FLUOXETINE HYDROCHLORIDE
     Dosage: 20 MG, UNK
     Route: 048
  11. CLOZARIL [Suspect]
     Active Substance: CLOZAPINE
     Dosage: 75 MG, QD (25 MG MORNING AND 50 MG EVENING)
     Route: 048
     Dates: start: 20160623
  12. CLOZARIL [Suspect]
     Active Substance: CLOZAPINE
     Dosage: 175 MG, QD (50 MG MORNING AND 125 MG EVENING)
     Route: 048
     Dates: start: 20160705
  13. CLOZARIL [Suspect]
     Active Substance: CLOZAPINE
     Dosage: 25 MG, MORNING
     Route: 048
     Dates: start: 20160618
  14. CLOZARIL [Suspect]
     Active Substance: CLOZAPINE
     Dosage: 75 MG, QD (25 MG MORNING AND 50 MG EVENING)
     Route: 048
     Dates: start: 20160624
  15. CLOZARIL [Suspect]
     Active Substance: CLOZAPINE
     Dosage: 100 MG, QD (25 MG MORNING AND 75 MG EVENING)
     Route: 048
     Dates: start: 20160626
  16. CLOZARIL [Suspect]
     Active Substance: CLOZAPINE
     Dosage: 150 MG, QD (50 MG MORNING AND 100 MG EVENING)
     Route: 048
     Dates: start: 20160702
  17. CLOZARIL [Suspect]
     Active Substance: CLOZAPINE
     Dosage: 50 MG, QD (25 MG MORNING AND 25 MG EVENING)
     Route: 048
     Dates: start: 20160620
  18. CLOZARIL [Suspect]
     Active Substance: CLOZAPINE
     Dosage: 75 MG, QD (25 MG MORNING AND 50 MG EVENING)
     Route: 048
     Dates: start: 20160625
  19. CLOZARIL [Suspect]
     Active Substance: CLOZAPINE
     Dosage: 125 MG, QD (25 MG MORNING AND 100 MG EVENING)
     Route: 048
     Dates: start: 20160701
  20. CLOZARIL [Suspect]
     Active Substance: CLOZAPINE
     Dosage: 125 MG, QD (25 MG MORNING AND 100 MG EVENING)
     Route: 048
     Dates: start: 20160629
  21. FLUOXETINE [Suspect]
     Active Substance: FLUOXETINE HYDROCHLORIDE
     Dosage: 40 MG, QD
     Route: 048
     Dates: start: 20160629
  22. CLOZARIL [Suspect]
     Active Substance: CLOZAPINE
     Dosage: 75 MG, QD (25 MG MORNING AND 50 MG EVENING)
     Route: 048
     Dates: start: 20160622
  23. CLOZARIL [Suspect]
     Active Substance: CLOZAPINE
     Dosage: 125 MG, QD (25 MG MORNING AND 100 MG EVENING)
     Route: 048
     Dates: start: 20160630
  24. CLOZARIL [Suspect]
     Active Substance: CLOZAPINE
     Dosage: 150 MG, QD (50 MG MORNING AND 100 MG EVENING)
     Route: 048
     Dates: start: 20160703
  25. CLOZARIL [Suspect]
     Active Substance: CLOZAPINE
     Dosage: 150 MG, QD (50 MG MORNING AND 100 MG EVENING)
     Route: 048
     Dates: start: 20160704

REACTIONS (18)
  - Blood creatine phosphokinase increased [Unknown]
  - Sinus tachycardia [Unknown]
  - White blood cell count increased [Unknown]
  - Neutrophil count increased [Unknown]
  - Constipation [Unknown]
  - Weight increased [Unknown]
  - Monocyte count increased [Unknown]
  - Electrocardiogram QT prolonged [Not Recovered/Not Resolved]
  - C-reactive protein increased [Unknown]
  - Cardiac disorder [Recovered/Resolved]
  - Blood urea nitrogen/creatinine ratio increased [Recovered/Resolved]
  - Bilirubin conjugated increased [Recovered/Resolved]
  - Alanine aminotransferase increased [Recovering/Resolving]
  - Blood creatinine increased [Recovered/Resolved]
  - Mood altered [Unknown]
  - Blood bilirubin increased [Unknown]
  - Blood bilirubin increased [Recovered/Resolved]
  - Sedation [Unknown]

NARRATIVE: CASE EVENT DATE: 20160614
